FAERS Safety Report 10169919 (Version 2)
Quarter: 2014Q3

REPORT INFORMATION
  Report Type: Spontaneous
  Country: US (occurrence: US)
  Receive Date: 20140513
  Receipt Date: 20140904
  Transmission Date: 20150326
  Serious: Yes (Hospitalization, Other)
  Sender: FDA-Public Use
  Company Number: US-BAYER-2014-069061

PATIENT
  Age: 32 Year
  Sex: Female
  Weight: 81.63 kg

DRUGS (2)
  1. MIRENA [Suspect]
     Active Substance: LEVONORGESTREL
     Indication: MENORRHAGIA
     Dosage: 20 MCG/24HR, CONT
     Route: 015
     Dates: start: 20120201, end: 20120504
  2. IBUPROFEN [IBUPROFEN] [Concomitant]
     Active Substance: IBUPROFEN
     Dosage: UNK
     Dates: start: 20120109

REACTIONS (14)
  - Salpingoplasty [None]
  - Emotional distress [None]
  - Anxiety [None]
  - Haemorrhage [None]
  - Fear [None]
  - Pelvic pain [None]
  - Vaginal haemorrhage [None]
  - Medical device discomfort [None]
  - Abdominal pain [None]
  - Depression [None]
  - Depressed mood [None]
  - Uterine perforation [None]
  - Genital haemorrhage [None]
  - Uterine injury [None]

NARRATIVE: CASE EVENT DATE: 20120504
